FAERS Safety Report 5147302-1 (Version None)
Quarter: 2006Q4

REPORT INFORMATION
  Report Type: 
  Country: None (occurrence: None)
  Receive Date: 20061109
  Receipt Date: 20061101
  Transmission Date: 20070319
  Serious: Yes (Disabling)
  Sender: FDA-Public Use
  Company Number: US-MERCK-0611USA01041

PATIENT
  Age: 54 Year
  Sex: Female

DRUGS (7)
  1. MAXALT [Suspect]
     Indication: MIGRAINE
     Route: 048
     Dates: start: 19990101
  2. MAXALT [Suspect]
     Route: 048
     Dates: start: 20061018, end: 20061018
  3. CYMBALTA [Concomitant]
     Route: 065
  4. COMBIPATCH [Concomitant]
     Route: 065
  5. LIPITOR [Concomitant]
     Route: 065
  6. XENICAL [Concomitant]
     Route: 065
  7. ALBUTEROL [Concomitant]
     Route: 065

REACTIONS (2)
  - OPTIC NEUROPATHY [None]
  - VISUAL FIELD DEFECT [None]
